FAERS Safety Report 7508000-X (Version None)
Quarter: 2011Q2

REPORT INFORMATION
  Report Type: 
  Country: None (occurrence: None)
  Receive Date: 20110519
  Receipt Date: 20110504
  Transmission Date: 20111010
  Serious: Yes (Hospitalization)
  Sender: FDA-Public Use
  Company Number: 2011MA005256

PATIENT
  Age: 37 Year
  Sex: Male

DRUGS (1)
  1. SULFAMETHOXAZOLE AND TRIMETHOPRIM [Suspect]
     Indication: URINARY TRACT INFECTION
     Dosage: Q12;PO
     Route: 048

REACTIONS (7)
  - DRUG RASH WITH EOSINOPHILIA AND SYSTEMIC SYMPTOMS [None]
  - HAEMOLYTIC ANAEMIA [None]
  - BLOOD UREA DECREASED [None]
  - MENINGITIS ASEPTIC [None]
  - HEPATITIS [None]
  - RASH MACULO-PAPULAR [None]
  - ORTHOSTATIC HYPOTENSION [None]
